FAERS Safety Report 5147498-1 (Version None)
Quarter: 2006Q4

REPORT INFORMATION
  Report Type: 
  Country: None (occurrence: None)
  Receive Date: 20061106
  Receipt Date: 20061023
  Transmission Date: 20070319
  Serious: Yes (Life-Threatening, Hospitalization, Other)
  Sender: FDA-Public Use
  Company Number: 2006115154

PATIENT
  Age: 49 Year
  Sex: Male
  Weight: 94.3482 kg

DRUGS (3)
  1. ZITHROMAX [Suspect]
     Indication: INFLUENZA LIKE ILLNESS
     Dosage: 500 MG (500 MG, 1 IN 1 D), ORAL
     Route: 048
     Dates: start: 20031008, end: 20031011
  2. GLUCOPHAGE [Concomitant]
  3. GLYBURIDE [Concomitant]

REACTIONS (7)
  - CEREBROVASCULAR ACCIDENT [None]
  - CHILLS [None]
  - ENDOCARDITIS BACTERIAL [None]
  - OEDEMA PERIPHERAL [None]
  - PAIN [None]
  - SKIN LESION [None]
  - SYNCOPE [None]
